FAERS Safety Report 7534842-0 (Version None)
Quarter: 2011Q2

REPORT INFORMATION
  Report Type: 
  Country: None (occurrence: None)
  Receive Date: 20110609
  Receipt Date: 20081003
  Transmission Date: 20111010
  Serious: Yes (Death)
  Sender: FDA-Public Use
  Company Number: PHHY2008CA14733

PATIENT
  Sex: Male

DRUGS (15)
  1. DOCUSATE CALCIUM [Concomitant]
     Dosage: 480 MG, UNK
     Route: 048
  2. VENLAFAXINE [Concomitant]
     Dosage: 3 DF, QHS
     Route: 048
  3. SALBUTAMOL SULFATE [Concomitant]
     Dosage: 2 POUGHS PER DAY
  4. ASPIRIN [Concomitant]
     Dosage: 1 DF PER DAY
     Route: 048
  5. RAMIPRIL [Concomitant]
     Dosage: 1 DF, QD
     Route: 048
  6. VITAMIN D [Concomitant]
     Dosage: 800 MG, UNK
     Route: 048
  7. BUDESONIDE [Concomitant]
  8. MAGNESIUM HYDROXIDE [Concomitant]
     Dosage: UNK
     Route: 048
  9. CLOZAPINE [Suspect]
     Indication: HALLUCINATION
     Dosage: 62.5 MG, QHS
     Route: 048
     Dates: start: 20030530
  10. CARBIDOPA + LEVODOPA [Concomitant]
     Dosage: 3 DF, UNK
     Route: 048
     Dates: end: 20080615
  11. MAGNESIUM SULFATE [Concomitant]
     Dosage: 1 DF, QHS
     Route: 048
  12. ROSUVASTATIN CALCIUM [Concomitant]
     Dosage: 1 DF, QHS
     Route: 048
  13. ACETAMINOPHEN [Concomitant]
     Dosage: 1 DF, TID
     Route: 048
  14. CALCIUM CARBONATE [Concomitant]
     Dosage: 1 DF, BID
     Route: 048
  15. VITAMIN B-12 [Concomitant]
     Dosage: 1 ML, UNK
     Route: 030

REACTIONS (1)
  - CORONARY ARTERY DISEASE [None]
